FAERS Safety Report 16773050 (Version 2)
Quarter: 2020Q1

REPORT INFORMATION
  Report Type: Report from Study
  Country: CA (occurrence: CA)
  Receive Date: 20190904
  Receipt Date: 20200302
  Transmission Date: 20200409
  Serious: Yes (Hospitalization, Other)
  Sender: FDA-Public Use
  Company Number: CA-TEVA-2019-CA-1101344

PATIENT
  Age: 72 Year
  Sex: Female

DRUGS (13)
  1. ACETAMINOPHEN. [Concomitant]
     Active Substance: ACETAMINOPHEN
     Indication: PREMEDICATION
     Route: 048
  2. RANITIDINE. [Concomitant]
     Active Substance: RANITIDINE
  3. XARELTO [Concomitant]
     Active Substance: RIVAROXABAN
  4. DEXAMETHASONE. [Concomitant]
     Active Substance: DEXAMETHASONE
  5. TEMODAL [Concomitant]
     Active Substance: TEMOZOLOMIDE
  6. AVASTIN [Suspect]
     Active Substance: BEVACIZUMAB
     Indication: GLIOMA
     Route: 042
  7. DAPSONE. [Concomitant]
     Active Substance: DAPSONE
  8. METHYLPREDNISOLONE. [Suspect]
     Active Substance: METHYLPREDNISOLONE
     Indication: PREMEDICATION
     Route: 042
  9. PROCHLORPERAZINE. [Concomitant]
     Active Substance: PROCHLORPERAZINE
  10. SENOKOT [Concomitant]
     Active Substance: SENNOSIDES
  11. APO-ESCITALOPRAM [Concomitant]
     Active Substance: ESCITALOPRAM OXALATE
  12. CLONAZEPAM. [Concomitant]
     Active Substance: CLONAZEPAM
  13. VALPROIC ACID. [Concomitant]
     Active Substance: VALPROIC ACID

REACTIONS (5)
  - Oxygen saturation decreased [Recovered/Resolved]
  - Infusion related reaction [Recovered/Resolved]
  - Ulcer [Recovered/Resolved]
  - Complication of device insertion [Recovered/Resolved]
  - Rectal haemorrhage [Recovered/Resolved]
